FAERS Safety Report 6425890-2 (Version None)
Quarter: 2009Q4

REPORT INFORMATION
  Report Type: 
  Country: None (occurrence: None)
  Receive Date: 20091029
  Receipt Date: 20091005
  Transmission Date: 20100525
  Serious: Yes (Other)
  Sender: FDA-Public Use
  Company Number: CIB09000003

PATIENT
  Sex: Female

DRUGS (1)
  1. OLAY TOTAL EFFECTS ANTI-AGING CREAM CLEANSER PLUS BLEMISH CONTROL(SALI [Suspect]
     Dosage: 1 SPLASH, 1 ONLY, OPTHALMIC
     Route: 047

REACTIONS (5)
  - ACCIDENTAL EXPOSURE [None]
  - CHEMICAL BURNS OF EYE [None]
  - CORNEAL ABRASION [None]
  - EYE ALLERGY [None]
  - VISUAL ACUITY REDUCED [None]
